FAERS Safety Report 9166326 (Version 11)
Quarter: 2014Q2

REPORT INFORMATION
  Report Type: Report from Study
  Country: US (occurrence: US)
  Receive Date: 20130315
  Receipt Date: 20140507
  Transmission Date: 20141212
  Serious: Yes (Hospitalization)
  Sender: FDA-Public Use
  Company Number: US-EISAI INC-E7389-03620-CLI-US

PATIENT
  Age: 72 Year
  Sex: Male
  Weight: 98 kg

DRUGS (44)
  1. E7389 (BOLD) [Suspect]
     Indication: BLADDER CANCER
     Route: 041
     Dates: start: 20130227, end: 20130308
  2. GEMCITABINE [Suspect]
     Indication: BLADDER CANCER
     Route: 041
     Dates: start: 20130227, end: 20130308
  3. CISPLATIN [Suspect]
     Indication: BLADDER CANCER
     Route: 041
     Dates: start: 20130227, end: 20130227
  4. ADVAIR DISKUS 250 - 50 MCG [Concomitant]
     Indication: CHRONIC OBSTRUCTIVE PULMONARY DISEASE
     Route: 048
     Dates: start: 2010
  5. ADVAIR DISKUS 250 - 50 MCG [Concomitant]
     Indication: ASTHMA
  6. ADVIL 200 MG [Concomitant]
     Indication: PAIN
     Route: 048
     Dates: start: 20130212
  7. APRIDRA [Concomitant]
     Indication: DIABETES MELLITUS
     Dosage: 10 U SLIDING SCALE
     Route: 058
     Dates: start: 201211
  8. ASTEPRO, AERO [Concomitant]
     Indication: SEASONAL ALLERGY
     Dosage: 205.5 MCG
     Route: 045
     Dates: start: 2010
  9. ASTEPRO, AERO [Concomitant]
     Indication: ASTHMA
  10. COUMADIN [Concomitant]
     Indication: ATRIAL FIBRILLATION
     Dosage: 6 MG, TIW, 7 MG ALL OTHER DAYS
     Route: 048
     Dates: start: 2011
  11. CRESTOR [Concomitant]
     Indication: HYPERCHOLESTEROLAEMIA
     Route: 048
     Dates: start: 201112
  12. VITAMIN B12 [Concomitant]
     Indication: VITAMIN SUPPLEMENTATION
     Route: 048
     Dates: start: 2011
  13. DUONEB [Concomitant]
     Indication: CHRONIC OBSTRUCTIVE PULMONARY DISEASE
     Dates: start: 2010
  14. DUONEB [Concomitant]
     Indication: ASTHMA
  15. FINACEA [Concomitant]
     Indication: ROSACEA
     Dosage: 15 % GEL
     Route: 061
     Dates: start: 2009
  16. GABAPENTIN [Concomitant]
     Indication: DIABETIC NEUROPATHY
     Route: 048
     Dates: start: 201210
  17. GLUCOPHAGE [Concomitant]
     Indication: DIABETES MELLITUS
     Route: 048
     Dates: start: 1992
  18. HYDROCODONE [Concomitant]
     Indication: PAIN
     Dosage: 10 - 325 MG
     Route: 048
     Dates: start: 20120919
  19. HYDROCORTISONE ACETATE [Concomitant]
     Indication: HAEMORRHOIDS
     Route: 054
     Dates: start: 20130212
  20. LEVEMIR, INJ [Concomitant]
     Indication: DIABETES MELLITUS
     Dosage: 25 U
     Route: 058
     Dates: start: 201112
  21. ORACEA [Concomitant]
     Indication: ROSACEA
     Route: 048
     Dates: start: 2011
  22. PROAIR HFA [Concomitant]
     Indication: CHRONIC OBSTRUCTIVE PULMONARY DISEASE
     Dates: start: 2010
  23. PROAIR HFA [Concomitant]
     Indication: ASTHMA
  24. PROTONIX [Concomitant]
     Indication: GASTROOESOPHAGEAL REFLUX DISEASE
     Route: 048
     Dates: start: 2002
  25. PROZAC [Concomitant]
     Indication: DEPRESSION
     Route: 048
     Dates: start: 2002
  26. TOPROL XL [Concomitant]
     Indication: HYPERTENSION
     Dosage: SR 50 MG
     Route: 048
     Dates: start: 201103
  27. TYLENOL [Concomitant]
     Indication: PAIN
     Dosage: 325 MG
     Route: 048
     Dates: start: 20130212
  28. VITAMIN D [Concomitant]
     Indication: VITAMIN SUPPLEMENTATION
     Dosage: 5000 U
     Route: 048
     Dates: start: 2012
  29. MIRALAX [Concomitant]
     Indication: CONSTIPATION
     Route: 048
     Dates: start: 20130212
  30. DULCOLAX [Concomitant]
     Indication: CONSTIPATION
     Route: 048
     Dates: start: 20130212
  31. PROCHLORPERAZINE [Concomitant]
     Indication: PROPHYLAXIS
     Route: 048
     Dates: start: 20130227
  32. ZOFRAN [Concomitant]
     Indication: PROPHYLAXIS
     Route: 048
     Dates: start: 20130227
  33. DEXAMETHASONE [Concomitant]
     Indication: PROPHYLAXIS
     Route: 048
     Dates: start: 20130227
  34. LASIX [Concomitant]
     Indication: PROPHYLAXIS
     Route: 048
     Dates: start: 20130227
  35. KAOPECTATE [Concomitant]
     Indication: DIARRHOEA
     Route: 048
     Dates: start: 20130228
  36. IMODIUM [Concomitant]
     Indication: DIARRHOEA
     Route: 048
     Dates: start: 20130228
  37. BENADRYL ALLERGY [Concomitant]
     Indication: SEASONAL ALLERGY
     Route: 048
     Dates: start: 20120814, end: 20130228
  38. ONDANSETRON [Concomitant]
     Indication: NAUSEA
     Route: 048
     Dates: start: 20120814, end: 20130227
  39. ONDANSETRON [Concomitant]
     Route: 048
     Dates: start: 20130227, end: 20130428
  40. SUDAFED [Concomitant]
     Indication: SEASONAL ALLERGY
     Route: 048
     Dates: start: 20120814, end: 20130228
  41. VERAMYST, AERO [Concomitant]
     Indication: CHRONIC OBSTRUCTIVE PULMONARY DISEASE
     Dates: start: 2010
  42. VICKS NYQUIL COUGH [Concomitant]
     Indication: SEASONAL ALLERGY
     Route: 048
     Dates: start: 20130212, end: 20130228
  43. AMOXIL [Concomitant]
     Indication: PRODUCT USED FOR UNKNOWN INDICATION
     Dates: start: 20130307
  44. NEURONTIN [Concomitant]

REACTIONS (2)
  - Hyponatraemia [Recovered/Resolved]
  - Urinary tract infection [Recovered/Resolved]
